FAERS Safety Report 17697007 (Version 1)
Quarter: 2020Q2

REPORT INFORMATION
  Report Type: Spontaneous
  Country: US (occurrence: US)
  Receive Date: 20200421
  Receipt Date: 20200421
  Transmission Date: 20200714
  Serious: No
  Sender: FDA-Public Use
  Company Number: None

PATIENT
  Sex: Female

DRUGS (5)
  1. ZERBAXA [Suspect]
     Active Substance: CEFTOLOZANE SULFATE\TAZOBACTAM SODIUM
     Indication: CYSTIC FIBROSIS
     Route: 042
     Dates: start: 20200409
  2. HEPARIN FLUSH [Concomitant]
     Active Substance: HEPARIN SODIUM
  3. SALINE FLUSH [Concomitant]
     Active Substance: SODIUM CHLORIDE
  4. STERILE SALINE FLUSH [Concomitant]
  5. VABOMERE [Suspect]
     Active Substance: MEROPENEM\VABORBACTAM
     Indication: CYSTIC FIBROSIS
     Route: 042
     Dates: start: 20200409

REACTIONS (2)
  - Rash [None]
  - Swelling [None]
